FAERS Safety Report 17699252 (Version 1)
Quarter: 2020Q2

REPORT INFORMATION
  Report Type: Spontaneous
  Country: US (occurrence: US)
  Receive Date: 20200423
  Receipt Date: 20200423
  Transmission Date: 20200714
  Serious: No
  Sender: FDA-Public Use
  Company Number: None

PATIENT
  Age: 78 Year
  Sex: Female
  Weight: 85.5 kg

DRUGS (1)
  1. DOCETAXEL. [Suspect]
     Active Substance: DOCETAXEL
     Indication: BREAST CANCER
     Dosage: ?          OTHER FREQUENCY:Q 21 DAYS;?
     Route: 040
     Dates: start: 20200420, end: 20200420

REACTIONS (2)
  - Discomfort [None]
  - Dyspnoea [None]

NARRATIVE: CASE EVENT DATE: 20200420
